FAERS Safety Report 10233025 (Version 2)
Quarter: 2014Q2

REPORT INFORMATION
  Report Type: Spontaneous
  Country: US (occurrence: US)
  Receive Date: 20140612
  Receipt Date: 20140616
  Transmission Date: 20141212
  Serious: No
  Sender: FDA-Public Use
  Company Number: US-PFIZER INC-2014157458

PATIENT
  Sex: Female

DRUGS (2)
  1. PHOSPHOLINE IODIDE [Suspect]
     Indication: GLAUCOMA
     Dosage: UNK
     Route: 047
     Dates: end: 2014
  2. PHOSPHOLINE IODIDE [Suspect]
     Dosage: UNK
     Route: 047
     Dates: start: 201406

REACTIONS (1)
  - Eye pain [Unknown]
